FAERS Safety Report 6378731-6 (Version None)
Quarter: 2009Q3

REPORT INFORMATION
  Report Type: 
  Country: None (occurrence: None)
  Receive Date: 20090928
  Receipt Date: 20090922
  Transmission Date: 20100115
  Serious: Yes (Death, Hospitalization)
  Sender: FDA-Public Use
  Company Number: US-CELGENEUS-163-21880-09072318

PATIENT
  Sex: Female

DRUGS (2)
  1. REVLIMID [Suspect]
     Indication: MULTIPLE MYELOMA
     Route: 048
     Dates: start: 20070501, end: 20090704
  2. REVLIMID [Suspect]
     Route: 048
     Dates: start: 20061101

REACTIONS (2)
  - GASTROINTESTINAL NECROSIS [None]
  - SEPTIC SHOCK [None]
